FAERS Safety Report 9674938 (Version 4)
Quarter: 2014Q1

REPORT INFORMATION
  Report Type: Report from Study
  Country: US (occurrence: US)
  Receive Date: 20131107
  Receipt Date: 20140217
  Transmission Date: 20141002
  Serious: Yes (Hospitalization)
  Sender: FDA-Public Use
  Company Number: US-JNJFOC-20131018212

PATIENT
  Age: 45 Year
  Sex: Female
  Weight: 77.57 kg

DRUGS (3)
  1. USTEKINUMAB [Suspect]
     Indication: PSORIASIS
     Dosage: 11 TOTAL INJECTIONS
     Route: 058
     Dates: start: 20100211
  2. TACLONEX [Concomitant]
     Route: 061
  3. ALTACE [Concomitant]
     Route: 048

REACTIONS (1)
  - Diverticulitis [Recovered/Resolved]
